FAERS Safety Report 15620581 (Version 2)
Quarter: 2018Q4

REPORT INFORMATION
  Report Type: Spontaneous
  Country: US (occurrence: US)
  Receive Date: 20181115
  Receipt Date: 20181116
  Transmission Date: 20190205
  Serious: No
  Sender: FDA-Public Use
  Company Number: US-BAYER-2018-210387

PATIENT
  Age: 84 Year
  Sex: Male
  Weight: 87.98 kg

DRUGS (7)
  1. MIRALAX [Suspect]
     Active Substance: POLYETHYLENE GLYCOL 3350
     Indication: GASTROINTESTINAL DISORDER
     Dosage: FOR 7 DAYS
     Route: 048
     Dates: start: 20181029
  2. BAYER ASPIRIN [Suspect]
     Active Substance: ASPIRIN
  3. ARMOUR THYROID [Concomitant]
     Active Substance: THYROID, PORCINE
  4. METOPROLOL. [Concomitant]
     Active Substance: METOPROLOL
  5. WARFARIN [Concomitant]
     Active Substance: WARFARIN
  6. MIRALAX [Suspect]
     Active Substance: POLYETHYLENE GLYCOL 3350
     Indication: GASTROINTESTINAL DISORDER
     Dosage: 1 DF (CAPFUL), UNK
     Route: 048
     Dates: start: 2016
  7. FISH OIL [Concomitant]
     Active Substance: FISH OIL

REACTIONS (5)
  - Product use in unapproved indication [Unknown]
  - Drug ineffective [Recovered/Resolved]
  - Diarrhoea [None]
  - Product use issue [Unknown]
  - Off label use [Recovered/Resolved]

NARRATIVE: CASE EVENT DATE: 2016
